FAERS Safety Report 11384140 (Version 1)
Quarter: 2015Q3

REPORT INFORMATION
  Report Type: Spontaneous
  Country: US (occurrence: US)
  Receive Date: 20150811
  Receipt Date: 20150811
  Transmission Date: 20151125
  Serious: Yes (Disabling)
  Sender: FDA-Public Use
  Company Number: US-ELI_LILLY_AND_COMPANY-US200902002220

PATIENT
  Age: 38 Year
  Sex: Male

DRUGS (1)
  1. CIALIS [Suspect]
     Active Substance: TADALAFIL
     Dosage: UNK, UNKNOWN
     Route: 065
     Dates: start: 200812

REACTIONS (4)
  - Vertigo [Recovered/Resolved]
  - Tinnitus [Not Recovered/Not Resolved]
  - Deafness neurosensory [Not Recovered/Not Resolved]
  - Ear disorder [Unknown]

NARRATIVE: CASE EVENT DATE: 20081214
